FAERS Safety Report 5792237-4 (Version None)
Quarter: 2008Q2

REPORT INFORMATION
  Report Type: 
  Country: None (occurrence: None)
  Receive Date: 20080625
  Receipt Date: 20080325
  Transmission Date: 20081010
  Serious: No
  Sender: FDA-Public Use
  Company Number: US-WYE-H03305108

PATIENT
  Sex: Female

DRUGS (1)
  1. TORISEL [Suspect]
     Indication: RENAL CELL CARCINOMA
     Dosage: 25 MG 1X PER 1 DAY, INTRAVENOUS ONE DOSE
     Route: 042

REACTIONS (3)
  - ASTHENIA [None]
  - FEELING ABNORMAL [None]
  - MUCOSAL INFLAMMATION [None]
